FAERS Safety Report 25259076 (Version 5)
Quarter: 2025Q3

REPORT INFORMATION
  Report Type: Report from Study
  Country: US (occurrence: US)
  Receive Date: 20250501
  Receipt Date: 20250702
  Transmission Date: 20251020
  Serious: Yes (Hospitalization, Other)
  Sender: ABBVIE
  Company Number: US-ABBVIE-6257136

PATIENT
  Age: 63 Year
  Sex: Female
  Weight: 68 kg

DRUGS (2)
  1. VYALEV [Suspect]
     Active Substance: FOSCARBIDOPA\FOSLEVODOPA
     Indication: Parkinson^s disease
     Route: 058
     Dates: start: 20250228, end: 20250502
  2. VYALEV [Suspect]
     Active Substance: FOSCARBIDOPA\FOSLEVODOPA
     Route: 058
     Dates: start: 20250520, end: 20250617

REACTIONS (14)
  - Injection site cellulitis [Recovering/Resolving]
  - Infusion site ulcer [Recovering/Resolving]
  - Infusion site irritation [Recovering/Resolving]
  - Infusion site rash [Recovering/Resolving]
  - Infusion site reaction [Recovered/Resolved]
  - Infusion site abscess [Recovered/Resolved]
  - Catheter site related reaction [Recovering/Resolving]
  - Infusion site bruising [Recovering/Resolving]
  - Staphylococcal infection [Recovered/Resolved]
  - Infusion site scar [Recovering/Resolving]
  - Infusion site induration [Recovering/Resolving]
  - Escherichia infection [Recovering/Resolving]
  - Infusion site infection [Recovered/Resolved]
  - Procedural site reaction [Recovering/Resolving]

NARRATIVE: CASE EVENT DATE: 20250101
